FAERS Safety Report 4496482-X (Version None)
Quarter: 2004Q3

REPORT INFORMATION
  Report Type: 
  Country: None (occurrence: None)
  Receive Date: 20040923
  Receipt Date: 20031013
  Transmission Date: 20050211
  Serious: Yes (Hospitalization)
  Sender: FDA-Public Use
  Company Number: MK200310-0121-1

PATIENT
  Age: 63 Year
  Sex: Male

DRUGS (2)
  1. MD-76R [Suspect]
     Indication: CATHETERISATION CARDIAC
     Dosage: , IA, ONCE
     Route: 013
     Dates: start: 20030804, end: 20030804
  2. MD-76R [Suspect]
     Dosage: , IA, ONCE
     Route: 014

REACTIONS (2)
  - DYSPNOEA [None]
  - ERYTHEMA [None]
